FAERS Safety Report 5732845-X (Version None)
Quarter: 2008Q2

REPORT INFORMATION
  Report Type: 
  Country: None (occurrence: None)
  Receive Date: 20080507
  Receipt Date: 20080507
  Transmission Date: 20081010
  Serious: Yes (Other)
  Sender: FDA-Public Use
  Company Number: None

PATIENT
  Age: 28 Year
  Sex: Female
  Weight: 61.2356 kg

DRUGS (1)
  1. SINGULAIR [Suspect]
     Indication: SEASONAL ALLERGY
     Dosage: 1 PILL DAILY
     Dates: start: 20070515, end: 20071015

REACTIONS (4)
  - ANXIETY [None]
  - EMOTIONAL DISORDER [None]
  - MUSCLE FATIGUE [None]
  - THINKING ABNORMAL [None]
